FAERS Safety Report 8939622 (Version 1)
Quarter: 2012Q4

REPORT INFORMATION
  Report Type: 
  Country: IT (occurrence: IT)
  Receive Date: 20121201
  Receipt Date: 20121201
  Transmission Date: 20130627
  Serious: Yes (Hospitalization)
  Sender: FDA-Public Use
  Company Number: IT-ACCORD-015451

PATIENT
  Age: 77 Year
  Sex: Female

DRUGS (5)
  1. CARDIRENE [Concomitant]
     Indication: THROMBOSIS PROPHYLAXIS
     Dosage: 30 Sachet
  2. LOBIVON [Concomitant]
     Indication: HYPERTENSION ARTERIAL
     Dosage: 28 tablets
  3. TORVAST [Concomitant]
     Indication: HYPERCHOLESTEREMIA
     Dosage: 10 Tablets
  4. GLIMEPIRIDE [Suspect]
     Indication: TYPE 2 DIABETES MELLITUS
     Dosage: Daily
     Route: 048
     Dates: start: 20120929, end: 20120930
  5. LASITONE [Concomitant]
     Indication: HYPERTENSION ARTERIAL
     Dosage: Furosemide 25 mg and Spironolactone 37 mg, 20 capsules

REACTIONS (2)
  - Presyncope [Recovering/Resolving]
  - Hypoglycaemia [Recovering/Resolving]
